FAERS Safety Report 19927616 (Version 1)
Quarter: 2021Q4

REPORT INFORMATION
  Report Type: Spontaneous
  Country: US (occurrence: US)
  Receive Date: 20211007
  Receipt Date: 20211007
  Transmission Date: 20220303
  Serious: No
  Sender: FDA-Public Use
  Company Number: US-INDIVIOR US-INDV-127623-2020

PATIENT

DRUGS (1)
  1. SUBLOCADE [Suspect]
     Active Substance: BUPRENORPHINE
     Indication: Product used for unknown indication
     Dosage: 300 MILLIGRAM, QMO (TWO INJECTIONS)
     Route: 065
     Dates: start: 20200607

REACTIONS (3)
  - Product preparation error [Recovered/Resolved]
  - Injection site pain [Unknown]
  - Drug withdrawal syndrome [Not Recovered/Not Resolved]

NARRATIVE: CASE EVENT DATE: 20200607
